FAERS Safety Report 6343261-4 (Version None)
Quarter: 2009Q3

REPORT INFORMATION
  Report Type: 
  Country: None (occurrence: None)
  Receive Date: 20090908
  Receipt Date: 20090827
  Transmission Date: 20100115
  Serious: Yes (Other)
  Sender: FDA-Public Use
  Company Number: PHHY2009BR37318

PATIENT
  Sex: Female
  Weight: 55 kg

DRUGS (6)
  1. ZELMAC [Suspect]
     Indication: INTESTINAL FUNCTIONAL DISORDER
     Dosage: 6 MG, QD
     Route: 048
  2. ZELMAC [Suspect]
     Dosage: 6 MG, ALTERATING DOSE EVERY OTHER DAY
     Route: 048
  3. FRISIUM [Concomitant]
     Indication: MUSCLE RELAXANT THERAPY
     Dosage: 0.5 DF, BID
     Route: 048
  4. PANTOCAL [Concomitant]
     Dosage: 20 MG, PRN
  5. CITONEURIN [Concomitant]
  6. DUSPATALIN [Concomitant]

REACTIONS (10)
  - BONE PAIN [None]
  - DIARRHOEA [None]
  - DRY MOUTH [None]
  - DYSPNOEA [None]
  - FEELING ABNORMAL [None]
  - HEART RATE INCREASED [None]
  - MALAISE [None]
  - MUSCULAR WEAKNESS [None]
  - MUSCULOSKELETAL CHEST PAIN [None]
  - SPEECH DISORDER [None]
